FAERS Safety Report 9542490 (Version 4)
Quarter: 2014Q3

REPORT INFORMATION
  Report Type: Spontaneous
  Country: US (occurrence: None)
  Receive Date: 20130918
  Receipt Date: 20140826
  Transmission Date: 20150326
  Serious: Yes (Hospitalization, Other)
  Sender: FDA-Public Use
  Company Number: AUR-APL-2013-07600

PATIENT
  Age: 70 Year
  Sex: Female

DRUGS (4)
  1. TOPIRAMATE. [Suspect]
     Active Substance: TOPIRAMATE
     Indication: PRODUCT USED FOR UNKNOWN INDICATION
     Dosage: UNK
  2. ENBREL [Suspect]
     Active Substance: ETANERCEPT
     Indication: RHEUMATOID ARTHRITIS
     Dates: start: 20130616, end: 20140407
  3. ANAPROXEN (NAPROXEN SODIUM) [Suspect]
     Active Substance: NAPROXEN SODIUM
     Indication: PRODUCT USED FOR UNKNOWN INDICATION
     Dosage: UNK UNK
  4. ENBREL [Suspect]
     Active Substance: ETANERCEPT
     Indication: PSORIASIS
     Dates: start: 20130616, end: 20140407

REACTIONS (25)
  - Gait disturbance [None]
  - Fatigue [None]
  - Mobility decreased [None]
  - Condition aggravated [None]
  - Increased upper airway secretion [None]
  - Abasia [None]
  - Productive cough [None]
  - Lung disorder [None]
  - Contusion [None]
  - Hyperkeratosis [None]
  - Drug effect incomplete [None]
  - Insomnia [None]
  - Feeling abnormal [None]
  - Dizziness [None]
  - Skin disorder [None]
  - Cough [None]
  - Pain [None]
  - Arthralgia [None]
  - Dysstasia [None]
  - Back pain [None]
  - Arthritis [None]
  - Peripheral artery thrombosis [None]
  - Skin papilloma [None]
  - Wheezing [None]
  - Cataract operation [None]

NARRATIVE: CASE EVENT DATE: 201306
